FAERS Safety Report 12187284 (Version 1)
Quarter: 2016Q1

REPORT INFORMATION
  Report Type: Spontaneous
  Country: US (occurrence: None)
  Receive Date: 20160316
  Receipt Date: 20160316
  Transmission Date: 20160526
  Serious: No
  Sender: FDA-Public Use
  Company Number: None

PATIENT
  Age: 27 Year
  Sex: Female
  Weight: 72.58 kg

DRUGS (5)
  1. FISH OIL SUPPLEMENT [Concomitant]
     Active Substance: FISH OIL
  2. CIPROFLOXACIN. [Suspect]
     Active Substance: CIPROFLOXACIN
     Indication: KERATOMILEUSIS
     Dosage: 1 BOTTLE  INTO THE EYE
     Route: 047
     Dates: start: 20160304, end: 20160311
  3. PREDNISOLONE ACETATE. [Suspect]
     Active Substance: PREDNISOLONE ACETATE
     Indication: POSTOPERATIVE CARE
     Dosage: 1 BOTTLE INTO THE EYE
     Route: 047
     Dates: start: 20160304, end: 20160311
  4. CIPROFLOXACIN. [Suspect]
     Active Substance: CIPROFLOXACIN
     Indication: POSTOPERATIVE CARE
     Dosage: 1 BOTTLE  INTO THE EYE
     Route: 047
     Dates: start: 20160304, end: 20160311
  5. PREDNISOLONE ACETATE. [Suspect]
     Active Substance: PREDNISOLONE ACETATE
     Indication: KERATOMILEUSIS
     Dosage: 1 BOTTLE INTO THE EYE
     Route: 047
     Dates: start: 20160304, end: 20160311

REACTIONS (2)
  - Urticaria [None]
  - Dyspnoea [None]

NARRATIVE: CASE EVENT DATE: 20160306
